FAERS Safety Report 6853095-X (Version None)
Quarter: 2010Q3

REPORT INFORMATION
  Report Type: 
  Country: None (occurrence: None)
  Receive Date: 20100717
  Receipt Date: 20071130
  Transmission Date: 20110219
  Serious: No
  Sender: FDA-Public Use
  Company Number: US-PFIZER INC-2007103465

PATIENT
  Sex: Female
  Weight: 53.2 kg

DRUGS (3)
  1. CHANTIX [Suspect]
     Indication: SMOKING CESSATION THERAPY
     Route: 048
     Dates: start: 20070917
  2. ATENOLOL [Concomitant]
     Indication: HYPERTENSION
     Route: 048
  3. ACETYLSALICYLIC ACID [Concomitant]
     Route: 048

REACTIONS (5)
  - BLOOD CHOLESTEROL INCREASED [None]
  - CONSTIPATION [None]
  - DRUG DOSE OMISSION [None]
  - GINGIVAL BLEEDING [None]
  - NAUSEA [None]
